FAERS Safety Report 17638874 (Version 6)
Quarter: 2020Q3

REPORT INFORMATION
  Report Type: Spontaneous
  Country: US (occurrence: US)
  Receive Date: 20200407
  Receipt Date: 20200716
  Transmission Date: 20201102
  Serious: No
  Sender: FDA-Public Use
  Company Number: US-SA-2020SA086401

PATIENT

DRUGS (2)
  1. APIDRA SOLOSTAR [Suspect]
     Active Substance: INSULIN GLULISINE
     Indication: TYPE 1 DIABETES MELLITUS
     Dosage: AT A DOSE OF 15 TO 20 UNITS AND IS ON SLIDING SCALE BEFORE MEALS
     Route: 065
     Dates: start: 1999
  2. APIDRA SOLOSTAR [Suspect]
     Active Substance: INSULIN GLULISINE
     Indication: DIABETES MELLITUS MANAGEMENT

REACTIONS (6)
  - Pancreas transplant [Unknown]
  - Wrong technique in device usage process [Unknown]
  - Drug ineffective [Not Recovered/Not Resolved]
  - Transplant failure [Unknown]
  - Cough [Not Recovered/Not Resolved]
  - Blood glucose increased [Not Recovered/Not Resolved]
